FAERS Safety Report 6785519-0 (Version None)
Quarter: 2010Q2

REPORT INFORMATION
  Report Type: 
  Country: None (occurrence: None)
  Receive Date: 20100623
  Receipt Date: 20100609
  Transmission Date: 20101027
  Serious: Yes (Other)
  Sender: FDA-Public Use
  Company Number: GB-RANBAXY-2010RR-34910

PATIENT
  Age: 57 Year
  Sex: Male

DRUGS (10)
  1. RAMIPRIL [Suspect]
     Indication: DRESSLER'S SYNDROME
     Dosage: 5 MG, UNK
     Route: 048
     Dates: start: 20100522, end: 20100524
  2. ASPIRIN [Concomitant]
     Indication: DRESSLER'S SYNDROME
     Dosage: 75 MG, UNK
     Route: 048
     Dates: start: 20100522
  3. CLOPIDOGREL [Concomitant]
     Indication: DRESSLER'S SYNDROME
     Dosage: 150 MG, UNK
     Route: 048
     Dates: start: 20100522
  4. HEPARIN [Concomitant]
     Route: 042
  5. METOCLOPRAMIDE [Concomitant]
     Dosage: UNK
     Route: 042
     Dates: start: 20100522
  6. METOPROLOL TARTRATE [Concomitant]
     Indication: DRESSLER'S SYNDROME
     Dosage: 50 MG, UNK
     Route: 048
     Dates: start: 20100522
  7. MORPHINE [Concomitant]
     Route: 042
  8. OMNIPAQUE 140 [Concomitant]
     Route: 022
  9. PARACETAMOL [Concomitant]
     Route: 048
  10. SIMVASTATIN [Concomitant]
     Indication: DRESSLER'S SYNDROME
     Dosage: 40 MG, UNK
     Route: 048
     Dates: start: 20100522

REACTIONS (4)
  - DYSPHONIA [None]
  - EYE SWELLING [None]
  - LIP SWELLING [None]
  - URTICARIA [None]
